FAERS Safety Report 8944944 (Version 3)
Quarter: 2013Q3

REPORT INFORMATION
  Report Type: Spontaneous
  Country: US (occurrence: US)
  Receive Date: 20121204
  Receipt Date: 20130925
  Transmission Date: 20140515
  Serious: No
  Sender: FDA-Public Use
  Company Number: US-009507513-1210USA012208

PATIENT
  Sex: Male

DRUGS (3)
  1. PEG-INTRON [Suspect]
     Indication: HEPATITIS C
     Dosage: REDIPEN
     Dates: start: 20121023, end: 20130115
  2. REBETOL [Suspect]
     Indication: HEPATITIS C
     Dosage: UNK
     Route: 048
     Dates: start: 20121023, end: 20130115
  3. VICTRELIS [Suspect]
     Indication: HEPATITIS C
     Dosage: UNK
     Route: 048
     Dates: start: 20121121, end: 20130115

REACTIONS (7)
  - Vomiting [Unknown]
  - Mental disorder [Unknown]
  - Confusional state [Unknown]
  - Rash [Recovered/Resolved]
  - Headache [Unknown]
  - Blood disorder [Unknown]
  - White blood cell count decreased [Unknown]
